FAERS Safety Report 21359563 (Version 3)
Quarter: 2025Q2

REPORT INFORMATION
  Report Type: Spontaneous
  Country: FR (occurrence: FR)
  Receive Date: 20220921
  Receipt Date: 20250410
  Transmission Date: 20250716
  Serious: Yes (Other)
  Sender: MYLAN
  Company Number: None

PATIENT
  Age: 64 Year
  Sex: Male
  Weight: 76 kg

DRUGS (32)
  1. AMIODARONE [Suspect]
     Active Substance: AMIODARONE
     Indication: Product used for unknown indication
  2. AMIODARONE [Suspect]
     Active Substance: AMIODARONE
     Route: 065
  3. AMIODARONE [Suspect]
     Active Substance: AMIODARONE
     Route: 065
  4. AMIODARONE [Suspect]
     Active Substance: AMIODARONE
  5. TAMSULOSIN [Suspect]
     Active Substance: TAMSULOSIN
     Indication: Product used for unknown indication
  6. TAMSULOSIN [Suspect]
     Active Substance: TAMSULOSIN
     Route: 065
  7. TAMSULOSIN [Suspect]
     Active Substance: TAMSULOSIN
     Route: 065
  8. TAMSULOSIN [Suspect]
     Active Substance: TAMSULOSIN
  9. BISOPROLOL [Suspect]
     Active Substance: BISOPROLOL
     Indication: Product used for unknown indication
  10. BISOPROLOL [Suspect]
     Active Substance: BISOPROLOL
     Route: 065
  11. BISOPROLOL [Suspect]
     Active Substance: BISOPROLOL
     Route: 065
  12. BISOPROLOL [Suspect]
     Active Substance: BISOPROLOL
  13. LANSOPRAZOLE [Suspect]
     Active Substance: LANSOPRAZOLE
     Indication: Product used for unknown indication
  14. LANSOPRAZOLE [Suspect]
     Active Substance: LANSOPRAZOLE
     Route: 065
  15. LANSOPRAZOLE [Suspect]
     Active Substance: LANSOPRAZOLE
     Route: 065
  16. LANSOPRAZOLE [Suspect]
     Active Substance: LANSOPRAZOLE
  17. DAPAGLIFLOZIN [Suspect]
     Active Substance: DAPAGLIFLOZIN
     Indication: Product used for unknown indication
  18. DAPAGLIFLOZIN [Suspect]
     Active Substance: DAPAGLIFLOZIN
     Route: 065
  19. DAPAGLIFLOZIN [Suspect]
     Active Substance: DAPAGLIFLOZIN
     Route: 065
  20. DAPAGLIFLOZIN [Suspect]
     Active Substance: DAPAGLIFLOZIN
  21. CALCIPARINE [Suspect]
     Active Substance: HEPARIN CALCIUM
     Indication: Deep vein thrombosis
     Dates: start: 20220701, end: 20220719
  22. CALCIPARINE [Suspect]
     Active Substance: HEPARIN CALCIUM
     Route: 058
     Dates: start: 20220701, end: 20220719
  23. CALCIPARINE [Suspect]
     Active Substance: HEPARIN CALCIUM
     Route: 058
     Dates: start: 20220701, end: 20220719
  24. CALCIPARINE [Suspect]
     Active Substance: HEPARIN CALCIUM
     Dates: start: 20220701, end: 20220719
  25. POTASSIUM CHLORIDE [Suspect]
     Active Substance: POTASSIUM CHLORIDE
     Indication: Product used for unknown indication
  26. POTASSIUM CHLORIDE [Suspect]
     Active Substance: POTASSIUM CHLORIDE
     Route: 065
  27. POTASSIUM CHLORIDE [Suspect]
     Active Substance: POTASSIUM CHLORIDE
     Route: 065
  28. POTASSIUM CHLORIDE [Suspect]
     Active Substance: POTASSIUM CHLORIDE
  29. ALDACTONE [Suspect]
     Active Substance: SPIRONOLACTONE
     Indication: Product used for unknown indication
  30. ALDACTONE [Suspect]
     Active Substance: SPIRONOLACTONE
     Route: 065
  31. ALDACTONE [Suspect]
     Active Substance: SPIRONOLACTONE
     Route: 065
  32. ALDACTONE [Suspect]
     Active Substance: SPIRONOLACTONE

REACTIONS (3)
  - Heparin-induced thrombocytopenia [Recovering/Resolving]
  - Sepsis [Recovered/Resolved]
  - Pulmonary mass [Unknown]

NARRATIVE: CASE EVENT DATE: 20220710
